FAERS Safety Report 7212623-5 (Version None)
Quarter: 2011Q1

REPORT INFORMATION
  Report Type: 
  Country: None (occurrence: None)
  Receive Date: 20110106
  Receipt Date: 20101224
  Transmission Date: 20110831
  Serious: Yes (Other)
  Sender: FDA-Public Use
  Company Number: PHHY2010MY89529

PATIENT
  Age: 20 Year
  Sex: Female

DRUGS (1)
  1. DESFERAL [Suspect]
     Indication: THALASSAEMIA
     Dosage: 3 G, UNK
     Route: 042
     Dates: start: 20100205

REACTIONS (8)
  - HYPOTENSION [None]
  - RASH [None]
  - SYNCOPE [None]
  - OEDEMA [None]
  - LOSS OF CONSCIOUSNESS [None]
  - DYSPNOEA [None]
  - CYANOSIS [None]
  - PRURITUS [None]
